FAERS Safety Report 5626818-5 (Version None)
Quarter: 2008Q1

REPORT INFORMATION
  Report Type: 
  Country: None (occurrence: None)
  Receive Date: 20080214
  Receipt Date: 20080208
  Transmission Date: 20080703
  Serious: Yes (Hospitalization)
  Sender: FDA-Public Use
  Company Number: JP-PFIZER INC-2008013061

PATIENT
  Age: 58 Year
  Sex: Male

DRUGS (2)
  1. SOLANAX [Suspect]
     Dosage: DAILY DOSE:1.2MG
  2. WYPAX [Concomitant]

REACTIONS (1)
  - VITAMIN B1 DEFICIENCY [None]
